FAERS Safety Report 14721470 (Version 1)
Quarter: 2018Q2

REPORT INFORMATION
  Report Type: Spontaneous
  Country: FR (occurrence: FR)
  Receive Date: 20180405
  Receipt Date: 20180405
  Transmission Date: 20180711
  Serious: Yes (Hospitalization, Congenital Anomaly, Other)
  Sender: FDA-Public Use
  Company Number: FR-GLAXOSMITHKLINE-FR2018GSK056837

PATIENT
  Age: 0 Day
  Sex: Male

DRUGS (2)
  1. ZELITREX [Suspect]
     Active Substance: VALACYCLOVIR HYDROCHLORIDE
     Indication: HERPES SIMPLEX
     Dosage: UNK
     Route: 064
     Dates: start: 2018
  2. SUMATRIPTAN. [Suspect]
     Active Substance: SUMATRIPTAN
     Indication: MIGRAINE
     Dosage: UNK
     Route: 064
     Dates: start: 201706, end: 2018

REACTIONS (3)
  - Convulsion neonatal [Not Recovered/Not Resolved]
  - Foetal exposure during pregnancy [Unknown]
  - Thrombotic stroke [Not Recovered/Not Resolved]

NARRATIVE: CASE EVENT DATE: 20180301
